FAERS Safety Report 10285888 (Version 1)
Quarter: 2014Q3

REPORT INFORMATION
  Report Type: Spontaneous
  Country: US (occurrence: None)
  Receive Date: 20140703
  Receipt Date: 20140703
  Transmission Date: 20150326
  Serious: Yes (Hospitalization)
  Sender: FDA-Public Use
  Company Number: UNT-2014-002666

PATIENT
  Age: 53 Year
  Sex: Female
  Weight: 80.3 kg

DRUGS (4)
  1. COUMADIN?/00014802/  (WARFARIN SODIUM) UNKNOWN [Concomitant]
  2. REMODULIN [Suspect]
     Active Substance: TREPROSTINIL
     Indication: PULMONARY ARTERIAL HYPERTENSION
     Route: 041
     Dates: start: 20140205
  3. TRACLEER?/01587701/ (BOSENTAN) UNKNOWN [Concomitant]
  4. REVATIO (SILDENAFIL CITRATE) UNKNOWN [Concomitant]

REACTIONS (2)
  - Infection [None]
  - Blood culture positive [None]

NARRATIVE: CASE EVENT DATE: 201406
